FAERS Safety Report 26203915 (Version 1)
Quarter: 2025Q4

REPORT INFORMATION
  Report Type: Spontaneous
  Country: US (occurrence: US)
  Receive Date: 20251226
  Receipt Date: 20251226
  Transmission Date: 20260117
  Serious: Yes (Other)
  Sender: GALPHARM INTERNATIONAL
  Company Number: US-PERRIGO-25US014766

PATIENT
  Sex: Female

DRUGS (1)
  1. OPILL [Suspect]
     Active Substance: NORGESTREL
     Indication: Oral contraception
     Dosage: UNKNOWN, UNKNOWN
     Route: 048
     Dates: start: 2024, end: 202512

REACTIONS (5)
  - Pulmonary thrombosis [Unknown]
  - Chest pain [Unknown]
  - Amenorrhoea [Unknown]
  - Weight increased [Recovering/Resolving]
  - Swelling face [Recovering/Resolving]
